FAERS Safety Report 8900329 (Version 1)
Quarter: 2012Q4

REPORT INFORMATION
  Report Type: 
  Country: EC (occurrence: EC)
  Receive Date: 20121109
  Receipt Date: 20121109
  Transmission Date: 20130627
  Serious: Yes (Death, Hospitalization)
  Sender: FDA-Public Use
  Company Number: PHHY2012EC103046

PATIENT
  Age: 86 Year
  Sex: Female

DRUGS (1)
  1. DIOVAN [Suspect]
     Indication: HYPERTENSION
     Dosage: 160 mg, UNK
     Route: 048
     Dates: start: 20110919

REACTIONS (2)
  - Death [Fatal]
  - Infarction [Unknown]
